FAERS Safety Report 11428514 (Version 1)
Quarter: 2015Q3

REPORT INFORMATION
  Report Type: Spontaneous
  Country: US (occurrence: None)
  Receive Date: 20150827
  Receipt Date: 20150827
  Transmission Date: 20151125
  Serious: Yes (Other)
  Sender: FDA-Public Use
  Company Number: None

PATIENT
  Age: 42 Year
  Sex: Female
  Weight: 82.1 kg

DRUGS (9)
  1. RELISTOR [Suspect]
     Active Substance: METHYLNALTREXONE BROMIDE
     Indication: NARCOTIC BOWEL SYNDROME
     Route: 058
     Dates: start: 20150825, end: 20150825
  2. LESCOL [Concomitant]
     Active Substance: FLUVASTATIN SODIUM
  3. VITAMIN D [Concomitant]
     Active Substance: CHOLECALCIFEROL
  4. METHOTREXATE [Concomitant]
     Active Substance: METHOTREXATE
  5. METHADONE [Concomitant]
     Active Substance: METHADONE HYDROCHLORIDE
  6. FOLIC ACID. [Concomitant]
     Active Substance: FOLIC ACID
  7. PROZAC [Concomitant]
     Active Substance: FLUOXETINE HYDROCHLORIDE
  8. HCTZ [Concomitant]
     Active Substance: HYDROCHLOROTHIAZIDE
  9. OXYCODONE [Concomitant]
     Active Substance: OXYCODONE

REACTIONS (4)
  - Abdominal pain [None]
  - Vomiting [None]
  - Nausea [None]
  - Hyperhidrosis [None]

NARRATIVE: CASE EVENT DATE: 20150825
